FAERS Safety Report 23283932 (Version 1)
Quarter: 2023Q4

REPORT INFORMATION
  Report Type: Spontaneous
  Country: US (occurrence: US)
  Receive Date: 20231211
  Receipt Date: 20231211
  Transmission Date: 20240110
  Serious: Yes (Death, Hospitalization)
  Sender: FDA-Public Use
  Company Number: US-MYLANLABS-2023M1130675

PATIENT
  Age: 35 Year
  Sex: Female

DRUGS (4)
  1. DOXORUBICIN [Suspect]
     Active Substance: DOXORUBICIN
     Indication: Angiosarcoma
     Dosage: UNK
     Route: 065
  2. DOXORUBICIN [Suspect]
     Active Substance: DOXORUBICIN
     Indication: Lung neoplasm
  3. PAZOPANIB [Suspect]
     Active Substance: PAZOPANIB
     Indication: Angiosarcoma
     Dosage: UNK
     Route: 065
  4. PAZOPANIB [Suspect]
     Active Substance: PAZOPANIB
     Indication: Lung neoplasm

REACTIONS (2)
  - Disease progression [Fatal]
  - Drug ineffective [Fatal]
